FAERS Safety Report 8104368-4 (Version None)
Quarter: 2012Q1

REPORT INFORMATION
  Report Type: 
  Country: None (occurrence: None)
  Receive Date: 20120201
  Receipt Date: 20120124
  Transmission Date: 20120608
  Serious: Yes (Death, Other)
  Sender: FDA-Public Use
  Company Number: US-BAYER-2012-009274

PATIENT
  Age: 49 Year
  Sex: Female
  Weight: 138.5 kg

DRUGS (29)
  1. MORPHINE [Concomitant]
     Route: 042
  2. ACETYLSALICYLIC ACID SRT [Concomitant]
     Dosage: 325 MG, UNK
     Route: 048
  3. PRINIVIL [Concomitant]
  4. MILRINONE [Concomitant]
     Dosage: UNK
     Dates: start: 20060523
  5. PROTAMINE SULFATE [Concomitant]
     Dosage: UNK
     Dates: start: 20060523
  6. LOPRESSOR [Concomitant]
  7. PHENERGAN [Concomitant]
     Route: 042
  8. LASIX [Concomitant]
     Dosage: 40 MG, UNK
     Route: 048
  9. ZOSYN [Concomitant]
     Dosage: 225 MG, QID
     Route: 042
     Dates: start: 20060516, end: 20060519
  10. VECURONIUM BROMIDE [Concomitant]
     Dosage: UNK
     Dates: start: 20060523
  11. PLASMA [Concomitant]
     Dosage: 8 U, UNK
     Route: 042
     Dates: start: 20060523
  12. AMIODARONE HCL [Concomitant]
  13. HEPARIN [Concomitant]
     Dosage: 5000 U, QID
     Route: 058
     Dates: start: 20060516, end: 20060520
  14. VERSED [Concomitant]
     Dosage: UNK
     Dates: start: 20060523
  15. TRASYLOL [Suspect]
     Indication: CORONARY ARTERY BYPASS
     Route: 042
  16. NITROSTAT [Concomitant]
  17. NEXIUM [Concomitant]
  18. ZYVOX [Concomitant]
  19. PROTONIX [Concomitant]
  20. THROMBIN LOCAL SOLUTION [Concomitant]
     Dosage: 5000 U, QID
     Dates: start: 20060523
  21. TRASYLOL [Suspect]
     Indication: CORONARY OSTIAL STENOSIS
  22. PLAVIX [Concomitant]
  23. PRAVACHOL [Concomitant]
  24. VANCOMYCIN [Concomitant]
     Dosage: UNK
     Dates: start: 20060523
  25. PLATELETS [Concomitant]
     Dosage: 6 PACKS X 5
     Route: 042
     Dates: start: 20060523
  26. CRYOPRECIPITATES [Concomitant]
     Dosage: 10 ML, UNK
     Route: 042
     Dates: start: 20060523
  27. VANCOMYCIN [Concomitant]
     Dosage: 1 G, UNK
     Route: 042
     Dates: start: 20060516
  28. HEPARIN [Concomitant]
     Dosage: UNK
     Dates: start: 20060523
  29. RED BLOOD CELLS [Concomitant]
     Dosage: 7 U, UNK
     Route: 042
     Dates: start: 20060523

REACTIONS (1)
  - CARDIO-RESPIRATORY ARREST [None]
